FAERS Safety Report 15995244 (Version 1)
Quarter: 2019Q1

REPORT INFORMATION
  Report Type: Spontaneous
  Country: GB (occurrence: GB)
  Receive Date: 20190222
  Receipt Date: 20190222
  Transmission Date: 20190418
  Serious: Yes (Other)
  Sender: FDA-Public Use
  Company Number: GB-009507513-1902GBR008345

PATIENT
  Age: 84 Year
  Sex: Male
  Weight: 95 kg

DRUGS (7)
  1. BETAMETHASONE VALERATE. [Concomitant]
     Active Substance: BETAMETHASONE VALERATE
     Dosage: FOR TRUNK.
     Dates: start: 20190114, end: 20190121
  2. WARFARIN SODIUM. [Concomitant]
     Active Substance: WARFARIN SODIUM
     Dosage: DOSE IS AS STATED AFTER YOUR MOST RECENT BLOODS
     Dates: start: 20170714
  3. SITAGLIPTIN PHOSPHATE [Suspect]
     Active Substance: SITAGLIPTIN PHOSPHATE
     Dosage: 100 MILLIGRAM, QD
     Dates: start: 20180803
  4. PREDNISOLONE. [Concomitant]
     Active Substance: PREDNISOLONE
     Dosage: EACH MORNING FOR 5 DAYS
     Dates: start: 20190122, end: 20190127
  5. SIMVASTATIN. [Concomitant]
     Active Substance: SIMVASTATIN
     Dosage: EVERY NIGHT
     Dates: start: 20181009
  6. HYDROCORTISONE. [Concomitant]
     Active Substance: HYDROCORTISONE
     Dosage: FOR FACE.
     Dates: start: 20190114, end: 20190121
  7. METFORMIN [Concomitant]
     Active Substance: METFORMIN HYDROCHLORIDE
     Dosage: 4 DOSAGE FORM, QD
     Dates: start: 20180803

REACTIONS (1)
  - Dermatitis [Not Recovered/Not Resolved]
